FAERS Safety Report 9346752 (Version 1)
Quarter: 2013Q2

REPORT INFORMATION
  Report Type: Spontaneous
  Country: US (occurrence: US)
  Receive Date: 20130613
  Receipt Date: 20130613
  Transmission Date: 20140414
  Serious: No
  Sender: FDA-Public Use
  Company Number: US-PFIZER INC-2013174026

PATIENT
  Age: 56 Year
  Sex: Female

DRUGS (1)
  1. LATANOPROST [Suspect]
     Indication: GLAUCOMA
     Dosage: 1 GTT, 1X/DAY AT BED TIME
     Route: 047
     Dates: start: 201212

REACTIONS (2)
  - Eye pain [Unknown]
  - Product quality issue [Unknown]
